FAERS Safety Report 22880829 (Version 4)
Quarter: 2024Q1

REPORT INFORMATION
  Report Type: Spontaneous
  Country: US (occurrence: US)
  Receive Date: 20230830
  Receipt Date: 20240320
  Transmission Date: 20240409
  Serious: No
  Sender: FDA-Public Use
  Company Number: US-BRISTOL-MYERS SQUIBB COMPANY-2023-121875

PATIENT
  Age: 76 Year
  Sex: Female

DRUGS (1)
  1. REVLIMID [Suspect]
     Active Substance: LENALIDOMIDE
     Indication: Plasma cell myeloma
     Route: 048
     Dates: start: 20211206

REACTIONS (8)
  - Muscle tightness [Unknown]
  - Peripheral swelling [Unknown]
  - Off label use [Unknown]
  - Insomnia [Unknown]
  - Muscle spasms [Unknown]
  - Constipation [Unknown]
  - Haemorrhoids [Unknown]
  - Arthralgia [Unknown]

NARRATIVE: CASE EVENT DATE: 20230816
